FAERS Safety Report 15205705 (Version 1)
Quarter: 2018Q3

REPORT INFORMATION
  Report Type: Report from Study
  Country: None (occurrence: JP)
  Receive Date: 20180727
  Receipt Date: 20180727
  Transmission Date: 20181010
  Serious: Yes (Other)
  Sender: FDA-Public Use
  Company Number: JP-INGENUS PHARMACEUTICALS, LLC-INF201807-000725

PATIENT
  Age: 38 Year
  Sex: Female

DRUGS (8)
  1. MELPHALAN. [Suspect]
     Active Substance: MELPHALAN
     Indication: GERM CELL CANCER
     Dosage: FROM DAY ?4 TO ?3. 1 CYCLE
  2. CARBOPLATIN. [Suspect]
     Active Substance: CARBOPLATIN
     Dosage: 4 CYCLE
  3. ETOPOSIDE. [Suspect]
     Active Substance: ETOPOSIDE
     Indication: GERM CELL CANCER
     Dosage: FROM DAY ?8 TO ?5. 1 CYCLE
  4. TOPOTECAN [Suspect]
     Active Substance: TOPOTECAN HYDROCHLORIDE
     Indication: GERM CELL CANCER
     Dosage: DAY ?6 TO ?3. 1 CYCLE
  5. CARBOPLATIN. [Suspect]
     Active Substance: CARBOPLATIN
     Indication: GERM CELL CANCER
     Dosage: FROM DAY ?8 TO DAY ?6. 1 CYCLE
  6. THIOTEPA. [Suspect]
     Active Substance: THIOTEPA
     Indication: GERM CELL CANCER
     Dosage: DAY ?4 TO ?2
  7. IFOSFAMIDE. [Suspect]
     Active Substance: IFOSFAMIDE
     Indication: GERM CELL CANCER
     Dosage: 4 CYCLES
  8. ETOPOSIDE. [Suspect]
     Active Substance: ETOPOSIDE
     Dosage: 4 CYCLE

REACTIONS (5)
  - Hypopituitarism [Unknown]
  - Mucosal inflammation [Unknown]
  - Febrile neutropenia [Unknown]
  - Product use in unapproved indication [Unknown]
  - Diabetes insipidus [Unknown]
